APPROVED DRUG PRODUCT: SULFAMETHOXAZOLE
Active Ingredient: SULFAMETHOXAZOLE
Strength: 500MG
Dosage Form/Route: TABLET;ORAL
Application: A087662 | Product #001
Applicant: ASCOT HOSP PHARMACEUTICALS INC DIV TRAVENOL LABORATORIES INC
Approved: Oct 20, 1982 | RLD: No | RS: No | Type: DISCN